FAERS Safety Report 18103165 (Version 1)
Quarter: 2020Q3

REPORT INFORMATION
  Report Type: Spontaneous
  Country: US (occurrence: US)
  Receive Date: 20200801
  Receipt Date: 20200801
  Transmission Date: 20201103
  Serious: Yes (Hospitalization)
  Sender: FDA-Public Use
  Company Number: None

PATIENT
  Age: 31 Year
  Sex: Female
  Weight: 69 kg

DRUGS (3)
  1. ENOXAPARIN 40MG SQ [Concomitant]
     Dates: start: 20200727, end: 20200801
  2. REMDESIVIR IV [Suspect]
     Active Substance: REMDESIVIR
     Indication: COVID-19
     Route: 042
     Dates: start: 20200727, end: 20200730
  3. REMDESIVIR IV [Suspect]
     Active Substance: REMDESIVIR
     Indication: HYPOXIA
     Route: 042
     Dates: start: 20200727, end: 20200730

REACTIONS (2)
  - Hepatitis viral [None]
  - Transaminases increased [None]

NARRATIVE: CASE EVENT DATE: 20200731
